FAERS Safety Report 25724729 (Version 1)
Quarter: 2025Q3

REPORT INFORMATION
  Report Type: Spontaneous
  Country: US (occurrence: US)
  Receive Date: 20250826
  Receipt Date: 20250826
  Transmission Date: 20251021
  Serious: No
  Sender: ELI LILLY AND COMPANY
  Company Number: US-ELI_LILLY_AND_COMPANY-US202508022492

PATIENT
  Age: 39 Year
  Sex: Female

DRUGS (1)
  1. PROZAC [Suspect]
     Active Substance: FLUOXETINE HYDROCHLORIDE
     Indication: Dyslexia
     Route: 065

REACTIONS (4)
  - Panic reaction [Unknown]
  - Crying [Unknown]
  - Confusional state [Unknown]
  - Off label use [Unknown]
